FAERS Safety Report 16786392 (Version 1)
Quarter: 2019Q3

REPORT INFORMATION
  Report Type: Other
  Country: TN (occurrence: TN)
  Receive Date: 20190909
  Receipt Date: 20190909
  Transmission Date: 20191005
  Serious: Yes (Hospitalization)
  Sender: FDA-Public Use
  Company Number: TN-B.BRAUN MEDICAL INC.-2074193

PATIENT
  Age: 64 Year
  Sex: Male

DRUGS (1)
  1. 1.5% GLYCINE IRRIGATION USP 0264-7390-60 [Suspect]
     Active Substance: GLYCINE

REACTIONS (1)
  - Renal tubular necrosis [None]
